FAERS Safety Report 4875414-6 (Version None)
Quarter: 2006Q1

REPORT INFORMATION
  Report Type: 
  Country: None (occurrence: None)
  Receive Date: 20060105
  Receipt Date: 20051219
  Transmission Date: 20060701
  Serious: Yes (Other)
  Sender: FDA-Public Use
  Company Number: 2005098716

PATIENT
  Age: 69 Year
  Sex: Male
  Weight: 103.4201 kg

DRUGS (5)
  1. CELEBREX [Suspect]
     Indication: PAIN
     Dosage: 200 MG (100 MG, 2 IN 1 D), ORAL
     Route: 048
     Dates: start: 19980101
  2. ASPIRIN [Suspect]
  3. GARLIC (GARLIC) [Concomitant]
  4. VITAMIN E [Concomitant]
  5. OPIAT (ATROPINE SULFATE, OPIUM ALKALOIDS TOTAL) [Concomitant]

REACTIONS (18)
  - ABASIA [None]
  - ANAEMIA [None]
  - BACK PAIN [None]
  - CARDIAC VALVE DISEASE [None]
  - CHEST PAIN [None]
  - CONTUSION [None]
  - DYSPNOEA [None]
  - HAEMORRHAGE [None]
  - INFLAMMATION [None]
  - LACERATION [None]
  - LYME DISEASE [None]
  - MUSCULOSKELETAL DISORDER [None]
  - OCCULT BLOOD [None]
  - PAIN [None]
  - PHARMACEUTICAL PRODUCT COMPLAINT [None]
  - PROCEDURAL COMPLICATION [None]
  - SCAR [None]
  - SURGICAL PROCEDURE REPEATED [None]
